FAERS Safety Report 7024782-8 (Version None)
Quarter: 2010Q4

REPORT INFORMATION
  Report Type: 
  Country: None (occurrence: None)
  Receive Date: 20101001
  Receipt Date: 20100927
  Transmission Date: 20110411
  Serious: Yes (Other)
  Sender: FDA-Public Use
  Company Number: US-PFIZER INC-2010122806

PATIENT
  Sex: Female
  Weight: 52.154 kg

DRUGS (2)
  1. ZARONTIN [Suspect]
     Indication: EPILEPSY
     Dosage: 500 MG IN THE MORNING AND 250 MG AT NIGHT
     Route: 048
  2. ZARONTIN [Suspect]
     Indication: CONVULSION
     Dosage: 500 MG, 2X/DAY
     Route: 048

REACTIONS (14)
  - ANXIETY [None]
  - ARTHRALGIA [None]
  - DRUG INEFFECTIVE [None]
  - FATIGUE [None]
  - HICCUPS [None]
  - INSOMNIA [None]
  - IRRITABILITY [None]
  - JOINT SPRAIN [None]
  - JOINT SWELLING [None]
  - MYALGIA [None]
  - OEDEMA PERIPHERAL [None]
  - ORAL PAIN [None]
  - STRESS FRACTURE [None]
  - VITAMIN D DECREASED [None]
